FAERS Safety Report 5068963-1 (Version None)
Quarter: 2006Q3

REPORT INFORMATION
  Report Type: 
  Country: None (occurrence: None)
  Receive Date: 20060801
  Receipt Date: 20060801
  Transmission Date: 20061208
  Serious: Yes (Hospitalization)
  Sender: FDA-Public Use
  Company Number: None

PATIENT
  Age: 63 Year
  Sex: Male

DRUGS (1)
  1. TAXOTERE [Suspect]
     Dosage: 60

REACTIONS (2)
  - BLOOD CALCIUM INCREASED [None]
  - WHITE BLOOD CELL COUNT INCREASED [None]
